FAERS Safety Report 24171527 (Version 2)
Quarter: 2024Q3

REPORT INFORMATION
  Report Type: Spontaneous
  Country: US (occurrence: US)
  Receive Date: 20240805
  Receipt Date: 20240923
  Transmission Date: 20241017
  Serious: Yes (Other)
  Sender: CSL BEHRING
  Company Number: US-BEH-2024176675

PATIENT
  Age: 18 Year
  Sex: Male

DRUGS (4)
  1. IDELVION [Suspect]
     Active Substance: COAGULATION FACTOR IX RECOMBINANT HUMAN
     Indication: Factor IX deficiency
     Dosage: 1000 IU, EVERY 7 DAYS
     Route: 042
     Dates: start: 201410
  2. IDELVION [Suspect]
     Active Substance: COAGULATION FACTOR IX RECOMBINANT HUMAN
     Indication: Factor IX deficiency
     Dosage: 1000 IU, EVERY 7 DAYS
     Route: 042
     Dates: start: 201410
  3. IDELVION [Suspect]
     Active Substance: COAGULATION FACTOR IX RECOMBINANT HUMAN
     Indication: Factor IX deficiency
     Dosage: 2000 IU, EVERY 7 DAYS
     Route: 042
     Dates: start: 201410
  4. IDELVION [Suspect]
     Active Substance: COAGULATION FACTOR IX RECOMBINANT HUMAN
     Indication: Factor IX deficiency
     Dosage: 2000 IU, EVERY 7 DAYS
     Route: 042
     Dates: start: 201410

REACTIONS (2)
  - Haemarthrosis [Unknown]
  - Limb injury [Unknown]

NARRATIVE: CASE EVENT DATE: 20240722
